FAERS Safety Report 23761263 (Version 3)
Quarter: 2024Q2

REPORT INFORMATION
  Report Type: Other
  Country: EG (occurrence: EG)
  Receive Date: 20240419
  Receipt Date: 20240513
  Transmission Date: 20240716
  Serious: Yes (Hospitalization, Other)
  Sender: FDA-Public Use
  Company Number: EG-002147023-NVSC2022EG230394

PATIENT
  Age: 35 Year
  Sex: Male

DRUGS (10)
  1. XOLAIR [Suspect]
     Active Substance: OMALIZUMAB
     Indication: Asthma
     Route: 058
     Dates: start: 2015
  2. XOLAIR [Suspect]
     Active Substance: OMALIZUMAB
     Dosage: 125 OR 130 UNIT NOT REPORTED
     Route: 058
     Dates: start: 20150501
  3. XOLAIR [Suspect]
     Active Substance: OMALIZUMAB
     Dosage: 2 DOSAGE FORM (2 INJECTIONS)
     Route: 058
  4. XOLAIR [Suspect]
     Active Substance: OMALIZUMAB
     Dosage: 2 DOSAGE FORM, QMO (TWO INJECTIONS AT ONCE EVERY 30 DAYS)
     Route: 058
     Dates: start: 201505
  5. SINGULAIR [Concomitant]
     Active Substance: MONTELUKAST SODIUM
  6. LORATADINE [Concomitant]
     Active Substance: LORATADINE
  7. MOMETASONE FUROATE [Concomitant]
     Active Substance: MOMETASONE FUROATE
  8. ATOREZA [Concomitant]
  9. OSSOFORTIN (EGYPT) [Concomitant]
  10. ASPIRIN [Concomitant]
     Active Substance: ASPIRIN

REACTIONS (23)
  - Dyspnoea [Recovered/Resolved]
  - Peripheral coldness [Not Recovered/Not Resolved]
  - Hair colour changes [Not Recovered/Not Resolved]
  - Symptom recurrence [Recovering/Resolving]
  - Vein disorder [Recovering/Resolving]
  - Chest discomfort [Recovering/Resolving]
  - Nasal congestion [Recovering/Resolving]
  - Pain [Recovering/Resolving]
  - Chest pain [Recovering/Resolving]
  - Fatigue [Recovering/Resolving]
  - Tremor [Not Recovered/Not Resolved]
  - Bone pain [Not Recovered/Not Resolved]
  - Myalgia [Not Recovered/Not Resolved]
  - Varicose vein [Not Recovered/Not Resolved]
  - Arthralgia [Recovered/Resolved]
  - Headache [Recovering/Resolving]
  - Lipids abnormal [Unknown]
  - Inappropriate schedule of product administration [Unknown]
  - Product availability issue [Unknown]
  - Product storage error [Unknown]
  - Product preparation issue [Unknown]
  - Off label use [Unknown]
  - Therapeutic product effect incomplete [Unknown]

NARRATIVE: CASE EVENT DATE: 20150501
